FAERS Safety Report 15594406 (Version 3)
Quarter: 2020Q2

REPORT INFORMATION
  Report Type: Spontaneous
  Country: US (occurrence: US)
  Receive Date: 20181106
  Receipt Date: 20200408
  Transmission Date: 20200713
  Serious: Yes (Other)
  Sender: FDA-Public Use
  Company Number: US-GILEAD-2018-0372515

PATIENT
  Age: 57 Year
  Sex: Male

DRUGS (1)
  1. VIREAD [Suspect]
     Active Substance: TENOFOVIR DISOPROXIL FUMARATE
     Indication: PRODUCT USED FOR UNKNOWN INDICATION
     Dosage: UNK
     Route: 065
     Dates: start: 2003, end: 2019

REACTIONS (9)
  - Fall [Unknown]
  - Fracture [Unknown]
  - Bone density decreased [Not Recovered/Not Resolved]
  - Radius fracture [Unknown]
  - Economic problem [Unknown]
  - Pain [Unknown]
  - Osteonecrosis [Unknown]
  - Osteopenia [Unknown]
  - Emotional distress [Unknown]

NARRATIVE: CASE EVENT DATE: 2011
